FAERS Safety Report 19016498 (Version 1)
Quarter: 2021Q1

REPORT INFORMATION
  Report Type: Spontaneous
  Country: US (occurrence: US)
  Receive Date: 20210317
  Receipt Date: 20210317
  Transmission Date: 20210420
  Serious: No
  Sender: FDA-Public Use
  Company Number: US-GLOBAL BLOOD THERAPEUTICS INC-US-GBT-21-00403

PATIENT
  Age: 64 Year
  Sex: Female

DRUGS (1)
  1. OXBRYTA [Suspect]
     Active Substance: VOXELOTOR
     Indication: SICKLE CELL DISEASE
     Route: 048
     Dates: start: 20210130, end: 20210130

REACTIONS (5)
  - Off label use [Unknown]
  - Nausea [Unknown]
  - Diarrhoea [Unknown]
  - Dizziness [Unknown]
  - Vertigo [Unknown]

NARRATIVE: CASE EVENT DATE: 20210130
